FAERS Safety Report 7680475-5 (Version None)
Quarter: 2011Q3

REPORT INFORMATION
  Report Type: 
  Country: None (occurrence: None)
  Receive Date: 20110812
  Receipt Date: 20110801
  Transmission Date: 20111222
  Serious: Yes (Hospitalization, Other)
  Sender: FDA-Public Use
  Company Number: US-JNJFOC-20081007388

PATIENT
  Sex: Female
  Weight: 51.7 kg

DRUGS (6)
  1. REMICADE [Suspect]
     Indication: CROHN'S DISEASE
     Route: 042
     Dates: end: 20071108
  2. PREDNISONE [Concomitant]
  3. METRONIDAZOLE [Concomitant]
  4. REMICADE [Suspect]
     Route: 042
     Dates: start: 20070531
  5. MESALAMINE [Concomitant]
     Route: 048
  6. REMICADE [Suspect]
     Dosage: TOTAL 5  DOSES
     Route: 042
     Dates: start: 20071010

REACTIONS (1)
  - CROHN'S DISEASE [None]
